FAERS Safety Report 8382065-8 (Version None)
Quarter: 2012Q2

REPORT INFORMATION
  Report Type: 
  Country: None (occurrence: None)
  Receive Date: 20120523
  Receipt Date: 20120523
  Transmission Date: 20120825
  Serious: Yes (Life-Threatening, Hospitalization)
  Sender: FDA-Public Use
  Company Number: None

PATIENT
  Sex: Female
  Weight: 58.9676 kg

DRUGS (1)
  1. RIVAROXABAN 20 MG JANSEN [Suspect]
     Indication: ATRIAL FIBRILLATION
     Dates: start: 20120201, end: 20120517

REACTIONS (4)
  - DRUG INTERACTION [None]
  - DIARRHOEA [None]
  - HAEMOGLOBIN DECREASED [None]
  - LOSS OF CONSCIOUSNESS [None]
